FAERS Safety Report 9331392 (Version 1)
Quarter: 2013Q2

REPORT INFORMATION
  Report Type: Spontaneous
  Country: DE (occurrence: DE)
  Receive Date: 20130605
  Receipt Date: 20130605
  Transmission Date: 20140414
  Serious: Yes (Other)
  Sender: FDA-Public Use
  Company Number: DE-MYLANLABS-2013S1011903

PATIENT
  Age: 31 Year
  Sex: Female

DRUGS (1)
  1. CITALOPRAM [Suspect]
     Indication: DEPRESSION
     Dates: start: 20120124

REACTIONS (2)
  - Exposure during pregnancy [Unknown]
  - Gestational diabetes [Unknown]
